FAERS Safety Report 7264961-8 (Version None)
Quarter: 2011Q1

REPORT INFORMATION
  Report Type: 
  Country: None (occurrence: None)
  Receive Date: 20110131
  Receipt Date: 20110119
  Transmission Date: 20110831
  Serious: Yes (Hospitalization, Other)
  Sender: FDA-Public Use
  Company Number: US-PFIZER INC-2010108446

PATIENT
  Sex: Female
  Weight: 108 kg

DRUGS (7)
  1. FENTANYL [Concomitant]
     Indication: NECK PAIN
     Dosage: 75 UG, EVERY 3 DAYS
     Route: 062
  2. XANAX [Concomitant]
     Dosage: 1 MG, UNK
     Route: 048
  3. WELLBUTRIN [Concomitant]
     Dosage: 75 MG, 1X/DAY
     Route: 048
  4. LYRICA [Suspect]
     Indication: FIBROMYALGIA
     Dosage: 300 MG, 1X/DAY
     Route: 048
     Dates: start: 20090101
  5. ALDACTONE [Concomitant]
     Indication: ACNE
     Dosage: 50 MG, 2X/DAY
     Route: 048
  6. PRISTIQ [Suspect]
     Dosage: 50 MG, 2X/DAY
     Route: 048
     Dates: start: 20090101
  7. OXYCODONE HYDROCHLORIDE AND PARACETAMOL [Concomitant]
     Indication: NECK PAIN
     Dosage: 10/325 MG DAILY

REACTIONS (8)
  - ROAD TRAFFIC ACCIDENT [None]
  - HEAD INJURY [None]
  - PAIN [None]
  - CONFUSIONAL STATE [None]
  - SPEECH DISORDER [None]
  - VOMITING [None]
  - MIGRAINE [None]
  - MALAISE [None]
